FAERS Safety Report 12459755 (Version 1)
Quarter: 2016Q2

REPORT INFORMATION
  Report Type: Spontaneous
  Country: US (occurrence: US)
  Receive Date: 20160613
  Receipt Date: 20160613
  Transmission Date: 20160815
  Serious: No
  Sender: FDA-Public Use
  Company Number: US-BAYER-2016-110428

PATIENT
  Age: 2 Year
  Sex: Female
  Weight: 14.51 kg

DRUGS (1)
  1. CHILDREN CLARITIN ALLERGY [Suspect]
     Active Substance: LORATADINE
     Indication: SEASONAL ALLERGY
     Dosage: 1 DF, QD
     Route: 048
     Dates: start: 201603

REACTIONS (2)
  - Product use issue [None]
  - Extra dose administered [None]

NARRATIVE: CASE EVENT DATE: 20160603
